FAERS Safety Report 10423292 (Version 4)
Quarter: 2015Q2

REPORT INFORMATION
  Report Type: Spontaneous
  Country: US (occurrence: None)
  Receive Date: 20140722
  Receipt Date: 20150420
  Transmission Date: 20150821
  Serious: No
  Sender: FDA-Public Use
  Company Number: AEGR000552

PATIENT
  Age: 57 Year
  Sex: Male
  Weight: 84.4 kg

DRUGS (12)
  1. JUXTAPID [Suspect]
     Active Substance: LOMITAPIDE MESYLATE
     Indication: TYPE IIA HYPERLIPIDAEMIA
     Route: 048
     Dates: start: 20140530
  2. FISH OIL (FISH OIL) [Concomitant]
     Active Substance: FISH OIL
  3. DIOVAN HCT (HYDROCHLOROTHIAZIDE, VALSARTAN) [Concomitant]
  4. ZETIA [Concomitant]
     Active Substance: EZETIMIBE
  5. ASA (ASA) [Concomitant]
  6. VITAMIN E [Concomitant]
     Active Substance: .ALPHA.-TOCOPHEROL
  7. VIT C (ASCORBIC ACID) [Concomitant]
  8. PRAVASTATIN (PRAVASTATIN SODIUM) [Concomitant]
  9. ATENOLOL (ATENOLOL) [Concomitant]
     Active Substance: ATENOLOL
  10. ASPIRIN (ACETYLSALICYLIC ACID) [Concomitant]
     Active Substance: ASPIRIN
  11. AMLODIPINE (AMLODIPINE BESILATE) [Concomitant]
  12. MULTI-VIT (VITAMINS NOS) [Concomitant]
     Active Substance: VITAMINS

REACTIONS (2)
  - Bronchitis [None]
  - Weight decreased [None]

NARRATIVE: CASE EVENT DATE: 2014
